FAERS Safety Report 16597630 (Version 1)
Quarter: 2019Q3

REPORT INFORMATION
  Report Type: Spontaneous
  Country: US (occurrence: US)
  Receive Date: 20190718
  Receipt Date: 20190718
  Transmission Date: 20191004
  Serious: Yes (Disabling)
  Sender: FDA-Public Use
  Company Number: None

PATIENT
  Age: 42 Year
  Sex: Female
  Weight: 87.75 kg

DRUGS (23)
  1. DOMPERIDOM [Concomitant]
  2. WELLBUTRIN [Concomitant]
     Active Substance: BUPROPION HYDROCHLORIDE
  3. CYCLOBENZAPRINE. [Concomitant]
     Active Substance: CYCLOBENZAPRINE
  4. CALCIUM [Concomitant]
     Active Substance: CALCIUM
  5. LIOTHYRONINE [Concomitant]
     Active Substance: LIOTHYRONINE
  6. DEXILANT [Concomitant]
     Active Substance: DEXLANSOPRAZOLE
  7. BOTOX [Suspect]
     Active Substance: ONABOTULINUMTOXINA
     Indication: MIGRAINE
     Route: 058
     Dates: start: 20180612, end: 20190205
  8. HYDROCODONE [Concomitant]
     Active Substance: HYDROCODONE
  9. ONGUARD PLUS [Concomitant]
  10. ONCE DAILY VITAMIN [Concomitant]
  11. IMIPRAMINE [Concomitant]
     Active Substance: IMIPRAMINE
  12. VITAMIN C [Concomitant]
     Active Substance: ASCORBIC ACID
  13. ZYRTEC [Concomitant]
     Active Substance: CETIRIZINE HYDROCHLORIDE
  14. ZOLMITRIPTAN. [Concomitant]
     Active Substance: ZOLMITRIPTAN
  15. TRAZODONE [Concomitant]
     Active Substance: TRAZODONE HYDROCHLORIDE
  16. LYRICA [Concomitant]
     Active Substance: PREGABALIN
  17. XARELTO [Concomitant]
     Active Substance: RIVAROXABAN
  18. OMEPRAZOLE. [Concomitant]
     Active Substance: OMEPRAZOLE
  19. DICLOFENAC [Concomitant]
     Active Substance: DICLOFENAC
  20. BENEFIBER [Concomitant]
     Active Substance: STARCH, WHEAT
  21. MIRALAX [Concomitant]
     Active Substance: POLYETHYLENE GLYCOL 3350
  22. GLUCOSAMINE [Concomitant]
     Active Substance: GLUCOSAMINE
  23. MELATONIN [Concomitant]
     Active Substance: MELATONIN

REACTIONS (5)
  - Tinnitus [None]
  - Photophobia [None]
  - Photosensitivity reaction [None]
  - Neck pain [None]
  - Ear pain [None]

NARRATIVE: CASE EVENT DATE: 20190205
